FAERS Safety Report 13950011 (Version 1)
Quarter: 2017Q3

REPORT INFORMATION
  Report Type: Spontaneous
  Country: US (occurrence: US)
  Receive Date: 20170908
  Receipt Date: 20170908
  Transmission Date: 20171128
  Serious: Yes (Hospitalization, Other)
  Sender: FDA-Public Use
  Company Number: US-ROCHE-1134026

PATIENT
  Age: 69 Year
  Sex: Male

DRUGS (13)
  1. ADRIAMYCIN [Concomitant]
     Active Substance: DOXORUBICIN HYDROCHLORIDE
  2. PRILOSEC [Concomitant]
     Active Substance: OMEPRAZOLE MAGNESIUM
     Route: 065
  3. PREDNISONE. [Concomitant]
     Active Substance: PREDNISONE
     Route: 065
  4. VICODIN [Concomitant]
     Active Substance: ACETAMINOPHEN\HYDROCODONE BITARTRATE
     Route: 065
  5. SYNTHROID [Concomitant]
     Active Substance: LEVOTHYROXINE SODIUM
     Route: 065
  6. RITUXAN [Suspect]
     Active Substance: RITUXIMAB
     Indication: NON-HODGKIN^S LYMPHOMA
     Route: 065
     Dates: start: 199801
  7. CYTOXAN [Concomitant]
     Active Substance: CYCLOPHOSPHAMIDE
  8. DIFLUCAN [Concomitant]
     Active Substance: FLUCONAZOLE
     Route: 065
  9. VINCRISTINE [Concomitant]
     Active Substance: VINCRISTINE
  10. LEVAQUIN [Concomitant]
     Active Substance: LEVOFLOXACIN
  11. LOMOTIL [Concomitant]
     Active Substance: ATROPINE SULFATE\DIPHENOXYLATE HYDROCHLORIDE
  12. GLYBURIDE. [Concomitant]
     Active Substance: GLYBURIDE
     Route: 065
  13. CAPOTEN [Concomitant]
     Active Substance: CAPTOPRIL

REACTIONS (29)
  - Febrile neutropenia [Unknown]
  - Orthopnoea [Unknown]
  - Constipation [Unknown]
  - Cough [Unknown]
  - Dyspnoea [Recovering/Resolving]
  - Disease progression [Unknown]
  - Candida infection [Unknown]
  - Regurgitation [Unknown]
  - Poor quality sleep [Unknown]
  - Neutropenia [Unknown]
  - Abdominal pain [Unknown]
  - Diarrhoea [Recovered/Resolved]
  - Lymphadenopathy [Unknown]
  - Ejection fraction decreased [Unknown]
  - Nausea [Unknown]
  - Oesophageal motility disorder [Unknown]
  - Thrombocytopenia [Unknown]
  - Pericardial effusion [Unknown]
  - Pancytopenia [Recovering/Resolving]
  - Aspiration [Unknown]
  - Pleural effusion [Unknown]
  - Dysphagia [Unknown]
  - Ascites [Unknown]
  - Mucosal inflammation [Unknown]
  - Cardiomyopathy [Unknown]
  - Fatigue [Unknown]
  - Oedema peripheral [Recovering/Resolving]
  - Weight decreased [Unknown]
  - Nocturia [Unknown]

NARRATIVE: CASE EVENT DATE: 19980210
